FAERS Safety Report 5572149-1 (Version None)
Quarter: 2007Q4

REPORT INFORMATION
  Report Type: 
  Country: None (occurrence: None)
  Receive Date: 20071221
  Receipt Date: 20071211
  Transmission Date: 20080405
  Serious: Yes (Hospitalization, Other)
  Sender: FDA-Public Use
  Company Number: CA-PFIZER INC-2007104729

PATIENT
  Sex: Male
  Weight: 71 kg

DRUGS (3)
  1. LYRICA [Suspect]
     Indication: NEURALGIA
     Route: 048
     Dates: start: 20070101, end: 20070101
  2. TYLENOL [Concomitant]
     Route: 048
  3. IMMUNE GLOBULIN INTRAVENOUS (HUMAN) [Concomitant]
     Route: 042
     Dates: start: 20071004, end: 20071006

REACTIONS (2)
  - ERYTHEMA MULTIFORME [None]
  - STREPTOCOCCAL INFECTION [None]
